FAERS Safety Report 4611790-7 (Version None)
Quarter: 2005Q1

REPORT INFORMATION
  Report Type: 
  Country: None (occurrence: None)
  Receive Date: 20050308
  Receipt Date: 20041201
  Transmission Date: 20050727
  Serious: Yes (Other)
  Sender: FDA-Public Use
  Company Number: 2004UW24681

PATIENT
  Age: 82 Year
  Sex: Male
  Weight: 70.306 kg

DRUGS (4)
  1. CRESTOR [Suspect]
     Indication: BLOOD CHOLESTEROL INCREASED
     Dosage: 10 MG PO
     Route: 048
     Dates: start: 20041001
  2. INSULIN [Concomitant]
  3. LISINOPRIL [Concomitant]
  4. LASIX [Concomitant]

REACTIONS (1)
  - BLOOD URINE PRESENT [None]
